FAERS Safety Report 6038153-4 (Version None)
Quarter: 2009Q1

REPORT INFORMATION
  Report Type: 
  Country: None (occurrence: None)
  Receive Date: 20090115
  Receipt Date: 20090113
  Transmission Date: 20090719
  Serious: Yes (Other)
  Sender: FDA-Public Use
  Company Number: DE-BRISTOL-MYERS SQUIBB COMPANY-14461826

PATIENT
  Age: 30 Year
  Sex: Male
  Weight: 77 kg

DRUGS (4)
  1. SUSTIVA [Suspect]
     Dosage: FORM = TABS
     Route: 048
     Dates: start: 20080711, end: 20080923
  2. ATRIPLA [Suspect]
     Dosage: FORM = TABS
     Dates: start: 20080924, end: 20081018
  3. COTRIM [Suspect]
     Indication: TOXOPLASMOSIS PROPHYLAXIS
     Dosage: FORM = TABS
     Dates: start: 20080711, end: 20081018
  4. TRUVADA [Suspect]
     Dosage: FORM = TABS; 1 DF= 200/300MG
     Dates: start: 20080711, end: 20080923

REACTIONS (1)
  - THROMBOCYTOPENIA [None]
